FAERS Safety Report 6813476-7 (Version None)
Quarter: 2010Q3

REPORT INFORMATION
  Report Type: 
  Country: None (occurrence: None)
  Receive Date: 20100701
  Receipt Date: 20100621
  Transmission Date: 20110219
  Serious: Yes (Hospitalization)
  Sender: FDA-Public Use
  Company Number: GB-MYLANLABS-2010S1011109

PATIENT
  Age: 37 Year
  Sex: Female
  Weight: 51 kg

DRUGS (2)
  1. LAMOTRIGINE [Suspect]
     Indication: EPILEPSY
     Route: 048
     Dates: start: 20100521, end: 20100603
  2. VALPROATE SODIUM [Concomitant]
     Indication: PRODUCT USED FOR UNKNOWN INDICATION
     Route: 048

REACTIONS (6)
  - DECREASED APPETITE [None]
  - LETHARGY [None]
  - LIP SWELLING [None]
  - MOBILITY DECREASED [None]
  - MOUTH ULCERATION [None]
  - RASH PAPULAR [None]
